FAERS Safety Report 13058856 (Version 4)
Quarter: 2017Q2

REPORT INFORMATION
  Report Type: Report from Study
  Country: IT (occurrence: IT)
  Receive Date: 20161223
  Receipt Date: 20170426
  Transmission Date: 20170830
  Serious: Yes (Other)
  Sender: FDA-Public Use
  Company Number: IT-009507513-1612ITA009093

PATIENT
  Age: 11 Month
  Sex: Male

DRUGS (1)
  1. SINEMET [Suspect]
     Active Substance: CARBIDOPA\LEVODOPA
     Indication: MEDICATION ERROR
     Dosage: 250 MG + 50 MG TABLETS, 1/2 TABLET ORAL, TOTAL
     Route: 048
     Dates: start: 20161213, end: 20161213

REACTIONS (2)
  - Vomiting [Recovered/Resolved]
  - Medication error [Recovered/Resolved]

NARRATIVE: CASE EVENT DATE: 20161213
